FAERS Safety Report 5737377-0 (Version None)
Quarter: 2008Q2

REPORT INFORMATION
  Report Type: 
  Country: None (occurrence: None)
  Receive Date: 20080514
  Receipt Date: 20080122
  Transmission Date: 20081010
  Serious: Yes (Hospitalization)
  Sender: FDA-Public Use
  Company Number: US-BRISTOL-MYERS SQUIBB COMPANY-14042527

PATIENT
  Age: 66 Year
  Sex: Female

DRUGS (6)
  1. IXEMPRA KIT [Suspect]
     Indication: BREAST CANCER METASTATIC
     Dosage: ROA: IVPB DURATION: 75 MG OVER 3 HOURS
     Route: 040
     Dates: start: 20080107
  2. ZOFRAN [Concomitant]
     Dates: start: 20080107
  3. DECADRON [Concomitant]
     Dosage: ROA: IVPB
     Route: 040
     Dates: start: 20080107
  4. ZANTAC [Concomitant]
     Dosage: ROA: IVPB
     Route: 040
     Dates: start: 20080107
  5. BENADRYL [Concomitant]
     Dosage: ROA: IVPB
     Route: 041
     Dates: start: 20080107
  6. NEULASTA [Concomitant]
     Dates: start: 20080108

REACTIONS (1)
  - PYREXIA [None]
